FAERS Safety Report 7747418-7 (Version None)
Quarter: 2011Q3

REPORT INFORMATION
  Report Type: 
  Country: None (occurrence: None)
  Receive Date: 20110913
  Receipt Date: 20110906
  Transmission Date: 20111222
  Serious: Yes (Other)
  Sender: FDA-Public Use
  Company Number: JP-GLAXOSMITHKLINE-B0746047A

PATIENT
  Sex: Female
  Weight: 28 kg

DRUGS (1)
  1. VALTREX [Suspect]
     Indication: HERPES ZOSTER
     Dosage: 500MG TWICE PER DAY
     Route: 048
     Dates: start: 20110901, end: 20110903

REACTIONS (2)
  - SOLILOQUY [None]
  - DELIRIUM [None]
